FAERS Safety Report 6455933-1 (Version None)
Quarter: 2009Q4

REPORT INFORMATION
  Report Type: 
  Country: None (occurrence: None)
  Receive Date: 20091125
  Receipt Date: 20091118
  Transmission Date: 20100525
  Serious: Yes (Hospitalization)
  Sender: FDA-Public Use
  Company Number: US-BIOGENIDEC-2009BI038106

PATIENT
  Age: 54 Year
  Sex: Female

DRUGS (2)
  1. AVONEX [Suspect]
     Indication: MULTIPLE SCLEROSIS
     Route: 030
     Dates: start: 19990221, end: 20090101
  2. AVONEX [Suspect]
     Route: 030
     Dates: start: 20090918

REACTIONS (3)
  - EMBOLISM [None]
  - MULTIPLE SCLEROSIS RELAPSE [None]
  - SPINAL ARTERY EMBOLISM [None]
